FAERS Safety Report 11665624 (Version 4)
Quarter: 2016Q1

REPORT INFORMATION
  Report Type: Spontaneous
  Country: JP (occurrence: JP)
  Receive Date: 20151027
  Receipt Date: 20160322
  Transmission Date: 20160525
  Serious: Yes (Other)
  Sender: FDA-Public Use
  Company Number: JP-PFIZER INC-2015358248

PATIENT
  Age: 74 Year
  Sex: Female

DRUGS (14)
  1. NEUROTROPIN [Concomitant]
     Active Substance: NEUROTROPIN
     Indication: NEURALGIA
     Dosage: 4 DF, 4X/DAY
     Dates: start: 20150714, end: 20150720
  2. NEUROTROPIN [Concomitant]
     Active Substance: NEUROTROPIN
     Dosage: 2 DF, 1X/DAY
     Dates: start: 20151124, end: 201512
  3. LYRICA [Suspect]
     Active Substance: PREGABALIN
     Dosage: 6.25 MG, 1X/DAY
     Route: 048
     Dates: start: 20151124, end: 201512
  4. NEUROTROPIN [Concomitant]
     Active Substance: NEUROTROPIN
     Dosage: 4 DF, 1X/DAY
     Dates: start: 20151118, end: 20151123
  5. LYRICA [Suspect]
     Active Substance: PREGABALIN
     Dosage: 12.5 MG, ALTERNATE DAY
     Route: 048
     Dates: start: 20151111, end: 20151117
  6. NEUROTROPIN [Concomitant]
     Active Substance: NEUROTROPIN
     Dosage: 4 DF, 1X/DAY
     Dates: start: 20150728, end: 20151007
  7. NEUROTROPIN [Concomitant]
     Active Substance: NEUROTROPIN
     Dosage: 4 DF, 1X/DAY
     Dates: start: 201512, end: 20160112
  8. LYRICA [Suspect]
     Active Substance: PREGABALIN
     Dosage: 12.5 MG, 1X/DAY
     Route: 048
     Dates: start: 201512, end: 20160112
  9. LYRICA [Suspect]
     Active Substance: PREGABALIN
     Dosage: 12.5 MG, 1X/DAY
     Route: 048
     Dates: start: 20151027, end: 20151110
  10. LYRICA [Suspect]
     Active Substance: PREGABALIN
     Dosage: 12.5 MG, 1X/DAY
     Route: 048
     Dates: start: 20150728, end: 20151007
  11. LYRICA [Suspect]
     Active Substance: PREGABALIN
     Dosage: 12.5 MG, 1X/DAY
     Route: 048
     Dates: start: 20151118, end: 20151123
  12. NEUROTROPIN [Concomitant]
     Active Substance: NEUROTROPIN
     Dosage: 4 DF, 1X/DAY
     Dates: start: 20151027, end: 20151110
  13. NEUROTROPIN [Concomitant]
     Active Substance: NEUROTROPIN
     Dosage: 4 DF, ALTERNATE DAY
     Dates: start: 20151111, end: 20151117
  14. LYRICA [Suspect]
     Active Substance: PREGABALIN
     Indication: NEURALGIA
     Dosage: 25 MG, 2X/DAY
     Route: 048
     Dates: start: 20150714, end: 20150720

REACTIONS (10)
  - Condition aggravated [Unknown]
  - Stoma site haemorrhage [Unknown]
  - Fall [Unknown]
  - Dizziness [Unknown]
  - Anaemia [Not Recovered/Not Resolved]
  - Pain [Recovering/Resolving]
  - Diplopia [Unknown]
  - Pancytopenia [Recovering/Resolving]
  - Condition aggravated [Recovering/Resolving]
  - Pruritus [Unknown]

NARRATIVE: CASE EVENT DATE: 20150719
